FAERS Safety Report 9746917 (Version 4)
Quarter: 2014Q1

REPORT INFORMATION
  Report Type: Spontaneous
  Country: ES (occurrence: ES)
  Receive Date: 20131211
  Receipt Date: 20140225
  Transmission Date: 20141002
  Serious: Yes (Other)
  Sender: FDA-Public Use
  Company Number: ES-BMSGILMSD-2013-0075763

PATIENT
  Age: 41 Year
  Sex: Female

DRUGS (4)
  1. ATRIPLA [Suspect]
     Indication: HIV INFECTION
     Dosage: 1 DF, QD
     Route: 048
     Dates: start: 200811
  2. MONTELUKAST [Suspect]
     Indication: ASTHMA
     Dosage: 10 MG, UNK
     Route: 048
     Dates: start: 20111115, end: 20120131
  3. TRUVADA [Concomitant]
     Indication: HIV INFECTION
     Dosage: UNK
     Dates: start: 200707, end: 200811
  4. FORMOTEROL [Concomitant]
     Indication: CONJUNCTIVITIS ALLERGIC

REACTIONS (8)
  - Drug interaction [Recovered/Resolved]
  - Neuropsychiatric syndrome [Recovered/Resolved]
  - Sleep disorder [Recovered/Resolved]
  - Nightmare [Recovered/Resolved]
  - Abnormal dreams [Recovered/Resolved]
  - Irritability [Recovered/Resolved]
  - Confusional state [Recovered/Resolved]
  - Disturbance in attention [Recovered/Resolved]
